FAERS Safety Report 17401932 (Version 1)
Quarter: 2020Q1

REPORT INFORMATION
  Report Type: Spontaneous
  Country: US (occurrence: US)
  Receive Date: 20200211
  Receipt Date: 20200211
  Transmission Date: 20200409
  Serious: Yes (Hospitalization)
  Sender: FDA-Public Use
  Company Number: US-ASTRAZENECA-2020SE19351

PATIENT
  Sex: Male

DRUGS (2)
  1. SYNAGIS [Suspect]
     Active Substance: PALIVIZUMAB
     Indication: TRISOMY 18
     Dosage: 50 MG/VL, 100 MG MONTHLY, 15 MG PER KG MONTHLY
     Route: 030
     Dates: start: 20181108
  2. SYNAGIS [Suspect]
     Active Substance: PALIVIZUMAB
     Indication: TRISOMY 18
     Dosage: 100 MG/VL, 100 MG MONTHLY, 15 MG PER KG MONTHLY
     Route: 030
     Dates: start: 20181108

REACTIONS (1)
  - Rhinovirus infection [Unknown]
